FAERS Safety Report 19209154 (Version 1)
Quarter: 2021Q2

REPORT INFORMATION
  Report Type: Report from Study
  Country: US (occurrence: US)
  Receive Date: 20210504
  Receipt Date: 20210504
  Transmission Date: 20210717
  Serious: No
  Sender: FDA-Public Use
  Company Number: US-ACADIA PHARMACEUTICALS INC.-ACA-2021-PIM-001353

PATIENT
  Age: 81 Year
  Sex: Female

DRUGS (4)
  1. NUPLAZID [Suspect]
     Active Substance: PIMAVANSERIN TARTRATE
     Indication: PARKINSON^S DISEASE PSYCHOSIS
     Dosage: 34 MILLIGRAM, QD
     Route: 048
     Dates: start: 202104, end: 20210405
  2. NUPLAZID [Suspect]
     Active Substance: PIMAVANSERIN TARTRATE
     Indication: HALLUCINATION
     Dosage: 34 MILLIGRAM, QD
     Route: 048
     Dates: start: 20210408, end: 202104
  3. SEROQUEL [Concomitant]
     Active Substance: QUETIAPINE FUMARATE
  4. NUPLAZID [Suspect]
     Active Substance: PIMAVANSERIN TARTRATE
     Indication: DELUSION

REACTIONS (6)
  - Sluggishness [Unknown]
  - Abnormal behaviour [Recovered/Resolved]
  - Product dose omission issue [Recovered/Resolved]
  - Somnolence [Unknown]
  - Dysarthria [Unknown]
  - Confusional state [Recovered/Resolved]

NARRATIVE: CASE EVENT DATE: 20210405
